FAERS Safety Report 10152129 (Version 1)
Quarter: 2014Q2

REPORT INFORMATION
  Report Type: Spontaneous
  Country: FR (occurrence: None)
  Receive Date: 20140501
  Receipt Date: 20140501
  Transmission Date: 20141212
  Serious: Yes (Hospitalization)
  Sender: FDA-Public Use
  Company Number: FR-2014-1398

PATIENT
  Age: 22 Year
  Sex: Male

DRUGS (3)
  1. NAVELBINE [Suspect]
     Indication: HODGKIN^S DISEASE STAGE IV
     Dosage: CYCLICAL
     Route: 042
     Dates: start: 20130808, end: 20140124
  2. GEMZAR [Suspect]
     Indication: HODGKIN^S DISEASE STAGE IV
     Dosage: CYCLICAL (1/21)
     Route: 042
     Dates: start: 20130808, end: 20140124
  3. CAELYX [Suspect]
     Indication: HODGKIN^S DISEASE STAGE IV
     Dosage: CYCLICAL
     Route: 042
     Dates: start: 20130808, end: 20140124

REACTIONS (1)
  - Pleural effusion [None]
